FAERS Safety Report 7375224-4 (Version None)
Quarter: 2011Q1

REPORT INFORMATION
  Report Type: 
  Country: None (occurrence: None)
  Receive Date: 20110325
  Receipt Date: 20110314
  Transmission Date: 20110831
  Serious: No
  Sender: FDA-Public Use
  Company Number: US-ELI_LILLY_AND_COMPANY-US201004006693

PATIENT
  Sex: Female
  Weight: 65.76 kg

DRUGS (4)
  1. FORTEO [Suspect]
     Dosage: 20 UG, DAILY (1/D)
  2. FORTEO [Suspect]
     Indication: OSTEOPOROSIS
     Dosage: 20 UG, DAILY (1/D)
     Dates: start: 20100203
  3. CALCIUM WITH VITAMIN D [Concomitant]
  4. VICODIN [Concomitant]
     Indication: PAIN
     Dosage: 1 D/F, AS NEEDED

REACTIONS (3)
  - WRIST FRACTURE [None]
  - FALL [None]
  - INJECTION SITE PAIN [None]
